FAERS Safety Report 4579839-8 (Version None)
Quarter: 2005Q1

REPORT INFORMATION
  Report Type: 
  Country: None (occurrence: None)
  Receive Date: 20050210
  Receipt Date: 20050126
  Transmission Date: 20050727
  Serious: Yes (Death, Hospitalization)
  Sender: FDA-Public Use
  Company Number: 2004AL000754

PATIENT
  Age: 62 Year
  Sex: Male

DRUGS (2)
  1. LISINOPRIL AND HYDROCHLOROTHIAZIDE TABLETS, 20 MG / 25 MG (PUREPAC) [Suspect]
     Dosage: PO
     Route: 048
  2. GLYBURIDE [Suspect]
     Dosage: PO
     Route: 048

REACTIONS (3)
  - BLOOD GLUCOSE DECREASED [None]
  - MEDICATION ERROR [None]
  - MULTIPLE DRUG OVERDOSE [None]
